FAERS Safety Report 25182483 (Version 2)
Quarter: 2025Q2

REPORT INFORMATION
  Report Type: Spontaneous
  Country: US (occurrence: US)
  Receive Date: 20250410
  Receipt Date: 20250508
  Transmission Date: 20250716
  Serious: Yes (Hospitalization, Other)
  Sender: KINIKSA PHARMACEUTICALS
  Company Number: US-Kiniksa Pharmaceuticals Ltd.-2025KPU000586

PATIENT

DRUGS (1)
  1. ARCALYST [Suspect]
     Active Substance: RILONACEPT
     Indication: Pericarditis
     Dosage: UNK UNK , QW
     Route: 058
     Dates: start: 202501

REACTIONS (7)
  - Angiosarcoma [Unknown]
  - Cardiac neoplasm unspecified [Unknown]
  - Pharyngeal haemorrhage [Unknown]
  - Malaise [Unknown]
  - Wrong patient received product [Recovered/Resolved]
  - Cough [Unknown]
  - Fatigue [Unknown]

NARRATIVE: CASE EVENT DATE: 20250101
